FAERS Safety Report 11752135 (Version 1)
Quarter: 2015Q4

REPORT INFORMATION
  Report Type: Spontaneous
  Country: US (occurrence: US)
  Receive Date: 20151118
  Receipt Date: 20151118
  Transmission Date: 20160304
  Serious: No
  Sender: FDA-Public Use
  Company Number: US-PRESTIUM-2015RN000008

PATIENT

DRUGS (1)
  1. DENAVIR [Suspect]
     Active Substance: PENCICLOVIR
     Indication: ORAL HERPES
     Dosage: 3-5 TIMES DAILY
     Route: 061
     Dates: start: 20150127

REACTIONS (2)
  - Drug ineffective [Not Recovered/Not Resolved]
  - Inappropriate schedule of drug administration [Not Recovered/Not Resolved]

NARRATIVE: CASE EVENT DATE: 20150127
